FAERS Safety Report 4856292-8 (Version None)
Quarter: 2005Q4

REPORT INFORMATION
  Report Type: 
  Country: None (occurrence: None)
  Receive Date: 20051215
  Receipt Date: 20051206
  Transmission Date: 20060501
  Serious: Yes (Other)
  Sender: FDA-Public Use
  Company Number: 2005165629

PATIENT
  Age: 54 Year
  Sex: Male

DRUGS (1)
  1. NIFEDIPINE [Suspect]
     Dosage: 10 MG (DAILY) ORAL
     Route: 048
     Dates: end: 20040401

REACTIONS (1)
  - LIVER DISORDER [None]
